FAERS Safety Report 8859839 (Version 1)
Quarter: 2012Q4

REPORT INFORMATION
  Report Type: 
  Country: US (occurrence: US)
  Receive Date: 20121025
  Receipt Date: 20121025
  Transmission Date: 20130627
  Serious: No
  Sender: FDA-Public Use
  Company Number: US-ABBOTT-12P-163-0987104-00

PATIENT
  Age: 38 Year
  Sex: Female

DRUGS (2)
  1. LUPRON DEPOT [Suspect]
     Indication: PREMENSTRUAL SYNDROME
  2. LUPRON DEPOT [Suspect]
     Indication: PREMENSTRUAL SYNDROME

REACTIONS (4)
  - Blood follicle stimulating hormone abnormal [Unknown]
  - Mood swings [Unknown]
  - Off label use [Unknown]
  - Premenstrual dysphoric disorder [Unknown]
